FAERS Safety Report 18940417 (Version 3)
Quarter: 2022Q1

REPORT INFORMATION
  Report Type: Other
  Country: AT (occurrence: None)
  Receive Date: 20210225
  Receipt Date: 20220128
  Transmission Date: 20220423
  Serious: Yes (Other)
  Sender: FDA-Public Use
  Company Number: AT-ROCHE-2769966

PATIENT
  Age: 58 Year
  Sex: Female
  Weight: 71 kg

DRUGS (29)
  1. PERTUZUMAB [Suspect]
     Active Substance: PERTUZUMAB
     Indication: HER2 positive breast cancer
     Route: 042
     Dates: start: 20190403, end: 20190403
  2. PERTUZUMAB [Suspect]
     Active Substance: PERTUZUMAB
     Route: 042
     Dates: start: 20190429, end: 20190725
  3. PERTUZUMAB [Suspect]
     Active Substance: PERTUZUMAB
     Dosage: ON 18/SEP/2019: MOST RECENT DOSE OF PERTUZUMAB PRIOR TO THE EVENT
     Route: 042
     Dates: start: 20190918, end: 20210511
  4. TRASTUZUMAB [Suspect]
     Active Substance: TRASTUZUMAB
     Indication: HER2 positive breast cancer
     Route: 041
     Dates: start: 20190403, end: 20190403
  5. TRASTUZUMAB [Suspect]
     Active Substance: TRASTUZUMAB
     Route: 041
     Dates: start: 20190429, end: 20190725
  6. TRASTUZUMAB [Suspect]
     Active Substance: TRASTUZUMAB
     Route: 041
     Dates: start: 20190918, end: 20210511
  7. PACLITAXEL [Suspect]
     Active Substance: PACLITAXEL
     Indication: HER2 positive breast cancer
     Route: 042
     Dates: start: 20190403, end: 20190624
  8. KCL [Concomitant]
     Active Substance: POTASSIUM CHLORIDE
     Route: 048
     Dates: start: 20191023
  9. NOVALGIN (AUSTRIA) [Concomitant]
     Route: 048
     Dates: start: 20191009, end: 20191023
  10. NOVALGIN (AUSTRIA) [Concomitant]
     Route: 048
     Dates: start: 20191023
  11. ACETAMINOPHEN\CODEINE PHOSPHATE [Concomitant]
     Active Substance: ACETAMINOPHEN\CODEINE PHOSPHATE
     Route: 048
     Dates: start: 20191009
  12. EMSER [Concomitant]
     Dates: start: 20191009
  13. ASCORBIC ACID\CALCIUM PHOSPHATE\CHOLECALCIFEROL\CITRIC ACID MONOHYDRAT [Concomitant]
     Active Substance: ASCORBIC ACID\CALCIUM PHOSPHATE\CHOLECALCIFEROL\CITRIC ACID MONOHYDRATE
     Dosage: ONGOING = CHECKED?500MG/800IE
     Route: 048
     Dates: start: 20190809
  14. LOVENOX [Concomitant]
     Active Substance: ENOXAPARIN SODIUM
     Dosage: ONGOING = CHECKED
     Route: 058
     Dates: start: 20190809
  15. LEVOTHYROXINE SODIUM [Concomitant]
     Active Substance: LEVOTHYROXINE SODIUM
     Dosage: ONGOING = CHECKED
     Route: 048
  16. ESOMEPRAZOLE [Concomitant]
     Active Substance: ESOMEPRAZOLE
     Dosage: ONGOING = CHECKED
     Route: 048
     Dates: start: 20190809
  17. PROLIA [Concomitant]
     Active Substance: DENOSUMAB
     Dates: end: 20190809
  18. DEXABENE [Concomitant]
     Route: 042
     Dates: start: 20190403, end: 20190629
  19. KYTRIL [Concomitant]
     Active Substance: GRANISETRON HYDROCHLORIDE
     Dates: start: 20190403, end: 20190624
  20. KYTRIL [Concomitant]
     Active Substance: GRANISETRON HYDROCHLORIDE
     Dosage: 1 AMPULE
     Route: 042
     Dates: start: 20211014
  21. RANITIDINE HYDROCHLORIDE [Concomitant]
     Active Substance: RANITIDINE HYDROCHLORIDE
     Route: 042
     Dates: start: 20190403, end: 20190624
  22. FENAKUT [Concomitant]
     Route: 042
     Dates: start: 20190403, end: 20190624
  23. COMIRNATY [Concomitant]
     Active Substance: TOZINAMERAN
     Route: 030
     Dates: start: 20210216, end: 20210216
  24. EMEND [Concomitant]
     Active Substance: APREPITANT
     Route: 048
     Dates: start: 20211014, end: 20211016
  25. DEXAMETHASONE [Concomitant]
     Active Substance: DEXAMETHASONE
     Route: 048
     Dates: start: 20211014, end: 20211016
  26. NEUROBION FORTE [Concomitant]
     Active Substance: CYANOCOBALAMIN\PYRIDOXINE HYDROCHLORIDE\THIAMINE DISULFIDE
     Indication: Wound infection
     Route: 048
     Dates: start: 20210803, end: 20211007
  27. NOVALGIN (AUSTRIA) [Concomitant]
     Indication: Wound infection
     Route: 048
     Dates: start: 20210824
  28. LYRICA [Concomitant]
     Active Substance: PREGABALIN
     Indication: Wound infection
     Route: 048
     Dates: start: 20210923
  29. DOXYCYCLINE [Concomitant]
     Active Substance: DOXYCYCLINE
     Indication: Wound infection
     Route: 048
     Dates: start: 20210923, end: 20211006

REACTIONS (1)
  - Wound infection [Recovered/Resolved]

NARRATIVE: CASE EVENT DATE: 20201113
